FAERS Safety Report 9439602 (Version 1)
Quarter: 2013Q3

REPORT INFORMATION
  Report Type: Spontaneous
  Country: GB (occurrence: GB)
  Receive Date: 20130805
  Receipt Date: 20130805
  Transmission Date: 20140515
  Serious: Yes (Other)
  Sender: FDA-Public Use
  Company Number: GB-009507513-1308GBR000755

PATIENT
  Age: 5 Year
  Sex: Female
  Weight: 21.9 kg

DRUGS (4)
  1. SINGULAIR [Suspect]
     Indication: ASTHMA
     Dosage: UNK
     Route: 048
     Dates: start: 201303, end: 201306
  2. CHLORPHENAMINE [Concomitant]
  3. CLENIL MODULITE [Concomitant]
  4. ALBUTEROL [Concomitant]

REACTIONS (2)
  - Haematoma [Unknown]
  - Increased tendency to bruise [Recovering/Resolving]
